FAERS Safety Report 8002721-0 (Version None)
Quarter: 2011Q4

REPORT INFORMATION
  Report Type: 
  Country: None (occurrence: None)
  Receive Date: 20111222
  Receipt Date: 20111215
  Transmission Date: 20120403
  Serious: Yes (Hospitalization)
  Sender: FDA-Public Use
  Company Number: SE-ELI_LILLY_AND_COMPANY-SE201111007661

PATIENT
  Sex: Female

DRUGS (4)
  1. RAMIPRIL [Concomitant]
     Indication: ACUTE MYOCARDIAL INFARCTION
     Dosage: 5 MG, UNK
     Route: 048
     Dates: start: 20110531
  2. EFFIENT [Suspect]
     Indication: ACUTE CORONARY SYNDROME
     Dosage: 10 MG, QD
     Dates: start: 20110607, end: 20110709
  3. SIMVASTATIN [Concomitant]
     Indication: ACUTE MYOCARDIAL INFARCTION
     Dosage: 40 MG, UNK
     Route: 048
     Dates: start: 20110531
  4. METOPROLOL TARTRATE [Concomitant]
     Indication: ACUTE MYOCARDIAL INFARCTION
     Dosage: 75 MG, UNK
     Route: 048
     Dates: start: 20110531

REACTIONS (1)
  - GASTROINTESTINAL HAEMORRHAGE [None]
